FAERS Safety Report 4393899-9 (Version None)
Quarter: 2004Q3

REPORT INFORMATION
  Report Type: 
  Country: None (occurrence: None)
  Receive Date: 20040702
  Receipt Date: 20040617
  Transmission Date: 20050211
  Serious: Yes (Hospitalization)
  Sender: FDA-Public Use
  Company Number: DSA_80675_2004

PATIENT
  Age: 61 Year
  Sex: Female

DRUGS (11)
  1. XYREM [Suspect]
     Indication: INSOMNIA
     Dosage: 3 G TWICE NIGHTLY PO
     Route: 048
     Dates: start: 20040603
  2. EFFEXOR [Concomitant]
  3. SYNTHROID [Concomitant]
  4. KLONOPIN [Concomitant]
  5. DOXEPIN HCL [Concomitant]
  6. AMBIEN [Concomitant]
  7. MULTI-VITAMIN [Concomitant]
  8. VITAMIN A [Concomitant]
  9. VITAMIN C [Concomitant]
  10. CALCIUM [Concomitant]
  11. GLUCOSAMINE [Concomitant]

REACTIONS (5)
  - HALLUCINATION [None]
  - HYPERHIDROSIS [None]
  - INCOHERENT [None]
  - INSOMNIA [None]
  - MENTAL DISORDER [None]
